FAERS Safety Report 10634040 (Version 1)
Quarter: 2014Q4

REPORT INFORMATION
  Report Type: Spontaneous
  Country: US (occurrence: None)
  Receive Date: 20141203
  Receipt Date: 20141203
  Transmission Date: 20150529
  Serious: Yes (Other)
  Sender: FDA-Public Use
  Company Number: FK201405627

PATIENT
  Age: 77 Year
  Sex: Male

DRUGS (10)
  1. CYCLOPHOSPHAMIDE (MANUFACTURER UNKNOWN) (CYCLOPHOSPHAMIDE) (CYCLOPHOSPHAMIDE) [Suspect]
     Active Substance: CYCLOPHOSPHAMIDE
     Indication: CHEMOTHERAPY
     Dates: end: 2011
  2. MELPHALAN (MELPHALAN) [Suspect]
     Active Substance: MELPHALAN
     Indication: CHEMOTHERAPY
     Dates: end: 2011
  3. INTERFERON NOS [Concomitant]
     Active Substance: INTERFERON
  4. DEXAMETHASONE INJECTION (MANUFACTURER UNKNOWN)  (DEXAMETHASONE SODIUM PHOSPHATE)  (DEXAMETHASONE SODIUM PHOSPHATE) [Suspect]
     Active Substance: DEXAMETHASONE
     Indication: CHEMOTHERAPY
     Dates: end: 2011
  5. ETOPOSIDE (MANUFACTURER UNKNOWN) (ETOPOSIDE) (ETOPOSIDE) [Suspect]
     Active Substance: ETOPOSIDE
     Indication: CHEMOTHERAPY
     Dates: end: 2011
  6. THALIDOMIDE [Suspect]
     Active Substance: THALIDOMIDE
     Indication: CHEMOTHERAPY
     Dates: end: 2011
  7. CISPLATIN (MANUFACTURER UNKNOWN) (CISPLATIN) (CISPLATIN) [Suspect]
     Active Substance: CISPLATIN
     Indication: CHEMOTHERAPY
     Dates: end: 2011
  8. LAMIVUDINE (LAMIVUDINE) [Concomitant]
     Active Substance: LAMIVUDINE
  9. DOXORUBICIN (MANUFACTURER UNKNOWN) (DOXORUBICIN HYDROCHLORIDE) (DOXORUBICIN HYDROCHLORIDE) [Suspect]
     Active Substance: DOXORUBICIN
     Indication: CHEMOTHERAPY
     Dates: end: 2011
  10. ENTECAVIR (ENTECAVIR) [Concomitant]

REACTIONS (1)
  - Hepatitis B [None]
